FAERS Safety Report 7205952-2 (Version None)
Quarter: 2011Q1

REPORT INFORMATION
  Report Type: 
  Country: None (occurrence: None)
  Receive Date: 20110103
  Receipt Date: 20100907
  Transmission Date: 20110831
  Serious: Yes (Other)
  Sender: FDA-Public Use
  Company Number: US-BIOGENIDEC-2010BI029935

PATIENT
  Sex: Female

DRUGS (1)
  1. TYSABRI [Suspect]
     Indication: MULTIPLE SCLEROSIS
     Route: 042
     Dates: start: 20070201

REACTIONS (3)
  - ANAPHYLACTIC REACTION [None]
  - EOSINOPHILIC OESOPHAGITIS [None]
  - INFLUENZA LIKE ILLNESS [None]
